FAERS Safety Report 7949386-1 (Version None)
Quarter: 2011Q4

REPORT INFORMATION
  Report Type: 
  Country: None (occurrence: None)
  Receive Date: 20111130
  Receipt Date: 20111122
  Transmission Date: 20120403
  Serious: Yes (Other)
  Sender: FDA-Public Use
  Company Number: US-GLAXOSMITHKLINE-A0954341A

PATIENT
  Sex: Female

DRUGS (4)
  1. LAMOTRIGINE [Suspect]
     Indication: DEPRESSION
     Dosage: 10MG PER DAY
     Route: 048
     Dates: start: 20110901
  2. SEREVENT [Concomitant]
  3. LAMICTAL [Suspect]
     Indication: DEPRESSION
     Dosage: 10MG PER DAY
     Route: 048
     Dates: start: 20090101, end: 20110901
  4. FLOVENT [Concomitant]

REACTIONS (9)
  - SKIN ATROPHY [None]
  - TINNITUS [None]
  - FATIGUE [None]
  - HAEMORRHAGIC DIATHESIS [None]
  - DIZZINESS [None]
  - ARTHROPATHY [None]
  - SKIN WRINKLING [None]
  - INCREASED TENDENCY TO BRUISE [None]
  - WRONG TECHNIQUE IN DRUG USAGE PROCESS [None]
